FAERS Safety Report 8849259 (Version 2)
Quarter: 2013Q1

REPORT INFORMATION
  Report Type: Spontaneous
  Country: US (occurrence: US)
  Receive Date: 20121017
  Receipt Date: 20130212
  Transmission Date: 20140127
  Serious: Yes (Hospitalization)
  Sender: FDA-Public Use
  Company Number: 2012SP003186

PATIENT
  Age: 67 Year
  Sex: Male
  Weight: 67.4 kg

DRUGS (23)
  1. FLUOROURACIL [Suspect]
     Indication: HEAD AND NECK CANCER
     Route: 042
     Dates: start: 20120912, end: 20120912
  2. FLUOROURACIL [Suspect]
     Indication: HEAD AND NECK CANCER
     Dates: start: 20121003
  3. CARBOPLATIN [Suspect]
     Indication: HEAD AND NECK CANCER
     Route: 042
     Dates: start: 20120912, end: 20120919
  4. CARBOPLATIN [Suspect]
     Indication: HEAD AND NECK CANCER
     Dates: start: 20120912
  5. BLINDED THERAPY [Suspect]
     Indication: HEAD AND NECK CANCER
     Route: 042
     Dates: start: 20120912, end: 20120912
  6. BLINDED THERAPY [Suspect]
     Indication: HEAD AND NECK CANCER
     Route: 042
     Dates: start: 20120919, end: 20120919
  7. METOPROLOL [Concomitant]
     Indication: HYPERTENSION
  8. LEVOTHYROXINE [Concomitant]
     Indication: HYPOTHYROIDISM
     Dates: start: 2010
  9. CHLORHEXIDINE [Concomitant]
     Indication: PAIN
  10. ACETAMINOPHEN W/HYDROCODONE BITARTRATE [Concomitant]
     Indication: PAIN
  11. LOPERAMIDE [Concomitant]
     Indication: INSOMNIA
  12. LOPERAMIDE [Concomitant]
     Indication: NAUSEA
  13. LORAZEPAM [Concomitant]
     Indication: INSOMNIA
  14. LORAZEPAM [Concomitant]
     Indication: NAUSEA
  15. OLANZAPINE [Concomitant]
     Indication: PROPHYLAXIS OF NAUSEA AND VOMITING
  16. ONDANSETRON [Concomitant]
     Indication: NAUSEA
  17. ONDANSETRON [Concomitant]
     Indication: VOMITING
  18. PROCHLORPERAZINE [Concomitant]
     Indication: NAUSEA
  19. PROCHLORPERAZINE [Concomitant]
     Indication: VOMITING
  20. TRAMADOL [Concomitant]
  21. CYANOCOBALAMIN [Concomitant]
  22. MECLIZINE /00072801/ [Concomitant]
  23. JEVITY [Concomitant]

REACTIONS (8)
  - Febrile neutropenia [Recovered/Resolved]
  - Diarrhoea [Recovered/Resolved]
  - Pancytopenia [Recovered/Resolved]
  - Anaemia [Recovering/Resolving]
  - Hypokalaemia [Recovered/Resolved]
  - Leukopenia [Recovering/Resolving]
  - Epistaxis [Recovered/Resolved]
  - Pyrexia [Unknown]
